FAERS Safety Report 16777036 (Version 1)
Quarter: 2019Q4

REPORT INFORMATION
  Report Type: Spontaneous
  Country: US (occurrence: US)
  Receive Date: 20190905
  Receipt Date: 20190905
  Transmission Date: 20200122
  Serious: Yes (Other)
  Sender: FDA-Public Use
  Company Number: None

PATIENT
  Age: 41 Year
  Sex: Female
  Weight: 65.25 kg

DRUGS (1)
  1. AJOVY [Suspect]
     Active Substance: FREMANEZUMAB-VFRM
     Indication: MIGRAINE
     Route: 030
     Dates: start: 20190728, end: 20190828

REACTIONS (5)
  - Skin exfoliation [None]
  - Dry skin [None]
  - Skin tightness [None]
  - Periorbital oedema [None]
  - Erythema [None]

NARRATIVE: CASE EVENT DATE: 20190828
